FAERS Safety Report 9692247 (Version 5)
Quarter: 2014Q3

REPORT INFORMATION
  Report Type: Spontaneous
  Country: US (occurrence: US)
  Receive Date: 20131118
  Receipt Date: 20140916
  Transmission Date: 20150326
  Serious: Yes (Other)
  Sender: FDA-Public Use
  Company Number: US-BRISTOL-MYERS SQUIBB COMPANY-18553669

PATIENT
  Age: 75 Year
  Sex: Male
  Weight: 77.57 kg

DRUGS (20)
  1. BYETTA [Suspect]
     Active Substance: EXENATIDE
     Indication: TYPE 2 DIABETES MELLITUS
     Route: 058
     Dates: start: 20060316
  2. ACETAMINOPHEN + HYDROCODONE [Suspect]
     Active Substance: ACETAMINOPHEN\HYDROCODONE
     Indication: PAIN
     Dosage: 1 DF: 10MG/500MG TABLET
     Route: 048
  3. AVANDIA [Suspect]
     Active Substance: ROSIGLITAZONE MALEATE
     Route: 048
  4. HYDROCODONE [Concomitant]
     Active Substance: HYDROCODONE
  5. ALLOPURINOL. [Concomitant]
     Active Substance: ALLOPURINOL
  6. NOVOLOG [Concomitant]
     Active Substance: INSULIN ASPART
  7. NIASPAN [Suspect]
     Active Substance: NIACIN
     Route: 048
  8. ARICEPT [Concomitant]
     Active Substance: DONEPEZIL HYDROCHLORIDE
  9. PLAVIX [Suspect]
     Active Substance: CLOPIDOGREL BISULFATE
     Dosage: 27DEC2010
     Route: 048
  10. METOPROLOL [Concomitant]
     Active Substance: METOPROLOL
  11. LYRICA [Concomitant]
     Active Substance: PREGABALIN
  12. TEVETEN [Concomitant]
     Active Substance: EPROSARTAN MESYLATE
  13. ACTOS [Concomitant]
     Active Substance: PIOGLITAZONE HYDROCHLORIDE
  14. CEREFOLIN [Concomitant]
     Active Substance: CYANOCOBALAMIN CO-57\LEVOMEFOLATE CALCIUM\PYRIDOXINE HYDROCHLORIDE\RIBOFLAVIN
     Dosage: TABS
  15. LIPITOR [Concomitant]
     Active Substance: ATORVASTATIN CALCIUM
  16. TOPROL XL [Concomitant]
     Active Substance: METOPROLOL SUCCINATE
     Dosage: 50MG MOR 25MG EVENING
  17. ASPIRIN. [Concomitant]
     Active Substance: ASPIRIN
  18. GLIMEPIRIDE. [Concomitant]
     Active Substance: GLIMEPIRIDE
  19. LISINOPRIL. [Concomitant]
     Active Substance: LISINOPRIL
  20. TRICOR [Concomitant]
     Active Substance: FENOFIBRATE

REACTIONS (15)
  - Bradycardia [None]
  - Proteinuria [None]
  - Jaundice cholestatic [None]
  - Oedema [None]
  - Pancreatic carcinoma [Unknown]
  - Injury [Unknown]
  - Pancreatic carcinoma [None]
  - Hypertension [None]
  - Metabolic acidosis [None]
  - Hyponatraemia [None]
  - Cholecystitis chronic [Unknown]
  - Lethargy [None]
  - Renal impairment [None]
  - Frequent bowel movements [None]
  - Anaemia [None]

NARRATIVE: CASE EVENT DATE: 20101221
